FAERS Safety Report 15537923 (Version 6)
Quarter: 2019Q4

REPORT INFORMATION
  Report Type: Spontaneous
  Country: US (occurrence: US)
  Receive Date: 20181022
  Receipt Date: 20191108
  Transmission Date: 20200122
  Serious: Yes (Other)
  Sender: FDA-Public Use
  Company Number: US-SA-2017SA211391

PATIENT
  Age: 53 Year
  Sex: Female
  Weight: 102.9 kg

DRUGS (30)
  1. MONTELUKAST [Concomitant]
     Active Substance: MONTELUKAST SODIUM
     Dosage: 1 DF,QD
     Route: 048
     Dates: start: 20171013
  2. RANITIDINE. [Concomitant]
     Active Substance: RANITIDINE
     Dosage: 1 DF, QD
     Route: 048
     Dates: start: 20180326
  3. WARFARIN [Concomitant]
     Active Substance: WARFARIN
     Dosage: 1 DF,UNK
     Route: 048
     Dates: start: 20170519
  4. NORMAL SALINE [Concomitant]
     Active Substance: SODIUM CHLORIDE
     Dosage: 0.9 %, UNK
     Route: 042
     Dates: start: 20190114
  5. HYDROXYZINE [Concomitant]
     Active Substance: HYDROXYZINE HYDROCHLORIDE
     Dosage: 1.25 MG TAB, PRN
     Route: 048
     Dates: start: 20180603
  6. STERILE WATER [Concomitant]
     Active Substance: WATER
     Dosage: UNK
     Route: 042
     Dates: start: 20190114
  7. FABRAZYME [Suspect]
     Active Substance: AGALSIDASE BETA
     Indication: FABRY^S DISEASE
     Dosage: 0.96 MG/KG (105 MG), Q10D
     Route: 041
     Dates: start: 20110602
  8. PROAIR HFA [Concomitant]
     Active Substance: ALBUTEROL SULFATE
     Dosage: UNK UNK,PRN
     Route: 055
     Dates: start: 20170414
  9. EPIPEN [Concomitant]
     Active Substance: EPINEPHRINE
     Indication: ANAPHYLACTIC REACTION
     Dosage: .3 MG,PRN
     Route: 030
     Dates: start: 20170209
  10. EPIPEN [Concomitant]
     Active Substance: EPINEPHRINE
     Dosage: 0.3 MG
     Route: 030
     Dates: start: 20180112
  11. ACICLOVIR [Concomitant]
     Active Substance: ACYCLOVIR
     Dosage: 1 DF,PRN
     Route: 048
     Dates: start: 20170119
  12. CETIRIZINE [Concomitant]
     Active Substance: CETIRIZINE HYDROCHLORIDE
     Dosage: 1 DF,QD
     Route: 048
     Dates: start: 20170724
  13. DIPHENHYDRAMINE. [Concomitant]
     Active Substance: DIPHENHYDRAMINE
     Indication: PREMEDICATION
     Dosage: 50 MG,UNK
     Route: 048
     Dates: start: 20170209
  14. NEXIUM [Concomitant]
     Active Substance: ESOMEPRAZOLE MAGNESIUM
     Dosage: 1 DF,QD
     Route: 048
     Dates: start: 20110526
  15. DIPHENHYDRAMINE. [Concomitant]
     Active Substance: DIPHENHYDRAMINE
     Dosage: 50 MG, UNK
     Route: 048
     Dates: start: 20190114
  16. HEPARIN [Concomitant]
     Active Substance: HEPARIN SODIUM
     Indication: FLUSHING
     Dosage: UNK UNK,UNK
     Route: 042
     Dates: start: 20170209
  17. VITAMIN D2 [Concomitant]
     Active Substance: ERGOCALCIFEROL
     Dosage: 1 DF,QM
     Route: 048
     Dates: start: 20170120
  18. MONTELUKAST [Concomitant]
     Active Substance: MONTELUKAST SODIUM
     Dosage: 1 DF, UNK
     Route: 048
     Dates: start: 20191017
  19. ORPHENADRINE CITRATE. [Concomitant]
     Active Substance: ORPHENADRINE CITRATE
     Dosage: 1 DF,BID
     Route: 048
     Dates: start: 20171018
  20. LASIX [Concomitant]
     Active Substance: FUROSEMIDE
     Dosage: 1 DF,PRN
     Route: 048
     Dates: start: 20170424
  21. NORMAL SALINE [Concomitant]
     Active Substance: SODIUM CHLORIDE
     Indication: MEDICATION DILUTION
     Dosage: .9 %,UNK
     Route: 042
     Dates: start: 20170209
  22. NORMAL SALINE [Concomitant]
     Active Substance: SODIUM CHLORIDE
     Dosage: 0.9 %
     Route: 042
     Dates: start: 20180112
  23. EPIPEN [Concomitant]
     Active Substance: EPINEPHRINE
     Dosage: 0.3 MG, UNK
     Dates: start: 20190114
  24. TYLENOL [Concomitant]
     Active Substance: ACETAMINOPHEN
     Dosage: 1 DF,Q4H
     Route: 048
     Dates: start: 20170120
  25. LISINOPRIL. [Concomitant]
     Active Substance: LISINOPRIL
     Dosage: 5 MG, QD
     Route: 048
     Dates: start: 20110526
  26. STERILE WATER [Concomitant]
     Active Substance: WATER
     Dosage: 10 ML
     Route: 042
     Dates: start: 20180112
  27. WARFARIN [Concomitant]
     Active Substance: WARFARIN
     Dosage: 5 MG AND 3 MG , QD
     Route: 048
     Dates: start: 20191003
  28. DIPHENHYDRAMINE. [Concomitant]
     Active Substance: DIPHENHYDRAMINE
     Indication: ANAPHYLACTIC REACTION
     Dosage: 50 MG
     Route: 048
     Dates: start: 20180121
  29. HEPARIN [Concomitant]
     Active Substance: HEPARIN SODIUM
     Dosage: 10 UN/ML
     Route: 042
     Dates: start: 20180121
  30. LORATADINE. [Concomitant]
     Active Substance: LORATADINE
     Dosage: 10 MG, QD
     Route: 048
     Dates: start: 20170927

REACTIONS (6)
  - Respiratory tract infection [Unknown]
  - Ear infection [Recovered/Resolved]
  - Pain in extremity [Not Recovered/Not Resolved]
  - Bronchitis [Unknown]
  - Upper respiratory tract infection [Unknown]
  - Burning sensation [Not Recovered/Not Resolved]

NARRATIVE: CASE EVENT DATE: 20171003
